FAERS Safety Report 16206149 (Version 1)
Quarter: 2019Q2

REPORT INFORMATION
  Report Type: Spontaneous
  Country: US (occurrence: US)
  Receive Date: 20190417
  Receipt Date: 20190417
  Transmission Date: 20190711
  Serious: Yes (Other)
  Sender: FDA-Public Use
  Company Number: US-TEVA-2019-US-1038731

PATIENT
  Sex: Female

DRUGS (4)
  1. ALENDRONATE SODIUM. [Suspect]
     Active Substance: ALENDRONATE SODIUM
     Indication: OSTEOPOROSIS
     Dosage: DOSE STRENGTH: 70
     Dates: start: 201811
  2. TRAMADOL. [Concomitant]
     Active Substance: TRAMADOL
     Route: 065
  3. TYLENOL [Concomitant]
     Active Substance: ACETAMINOPHEN
     Route: 065
  4. OMEPRAZOLE. [Concomitant]
     Active Substance: OMEPRAZOLE
     Route: 065

REACTIONS (9)
  - Abdominal discomfort [Unknown]
  - Myalgia [Unknown]
  - Constipation [Unknown]
  - Renal colic [Unknown]
  - Bone pain [Unknown]
  - Dyspepsia [Unknown]
  - Nephrolithiasis [Unknown]
  - Nausea [Unknown]
  - Arthralgia [Unknown]

NARRATIVE: CASE EVENT DATE: 20190323
